FAERS Safety Report 5228287-6 (Version None)
Quarter: 2007Q1

REPORT INFORMATION
  Report Type: 
  Country: None (occurrence: None)
  Receive Date: 20070131
  Receipt Date: 20070131
  Transmission Date: 20070707
  Serious: No
  Sender: FDA-Public Use
  Company Number: None

PATIENT
  Age: 39 Year
  Sex: Female
  Weight: 52.1637 kg

DRUGS (1)
  1. ZICAM COLD REMEDY NASAL GEL MATRIXX INITIATIVES [Suspect]
     Indication: NASOPHARYNGITIS
     Dosage: 1 SPRAY IN EACH NOSTRIL   EVERY 4-6 HOURS  NASAL
     Route: 045
     Dates: start: 20061213, end: 20061215

REACTIONS (2)
  - ANOSMIA [None]
  - DYSGEUSIA [None]
